APPROVED DRUG PRODUCT: REBETOL
Active Ingredient: RIBAVIRIN
Strength: 40MG/ML
Dosage Form/Route: SOLUTION;ORAL
Application: N021546 | Product #001
Applicant: SCHERING CORP
Approved: Jul 29, 2003 | RLD: Yes | RS: No | Type: DISCN